FAERS Safety Report 4704978-8 (Version None)
Quarter: 2005Q3

REPORT INFORMATION
  Report Type: 
  Country: None (occurrence: None)
  Receive Date: 20050701
  Receipt Date: 20050629
  Transmission Date: 20060218
  Serious: Yes (Hospitalization)
  Sender: FDA-Public Use
  Company Number: JP-SP-2005-01246

PATIENT
  Age: 59 Year
  Sex: Male

DRUGS (2)
  1. IMMUCYST [Suspect]
     Indication: MALIGNANT NEOPLASM OF RENAL PELVIS
     Route: 043
     Dates: start: 20050502, end: 20050613
  2. ISONIAZID [Concomitant]
     Dosage: 3 TAB
     Route: 048
     Dates: start: 20050502, end: 20050613

REACTIONS (1)
  - HYPERTONIC BLADDER [None]
